FAERS Safety Report 21087103 (Version 4)
Quarter: 2022Q4

REPORT INFORMATION
  Report Type: Other
  Country: US (occurrence: None)
  Receive Date: 20220715
  Receipt Date: 20221102
  Transmission Date: 20230113
  Serious: Yes (Hospitalization)
  Sender: FDA-Public Use
  Company Number: US-ROCHE-3134828

PATIENT
  Age: 53 Year
  Sex: Female
  Weight: 73.548 kg

DRUGS (2)
  1. OCREVUS [Suspect]
     Active Substance: OCRELIZUMAB
     Indication: Multiple sclerosis
     Dosage: (PRESCRIBED AS 300MG INFUSE DAY 1 + DAY 15, 600 MG EVERY 6 MONTHS), DATE OF TREATMENTS WERE 30/DEC/2
     Route: 042
     Dates: start: 20191230
  2. BACLOFEN [Concomitant]
     Active Substance: BACLOFEN
     Indication: Muscle spasms
     Dosage: FREQUENCY IS AS REQUIRED USUALLY ABOUT TWICE A WEEK
     Route: 048

REACTIONS (6)
  - COVID-19 pneumonia [Not Recovered/Not Resolved]
  - Pyrexia [Not Recovered/Not Resolved]
  - Cough [Recovered/Resolved]
  - Fatigue [Unknown]
  - Peroneal nerve palsy [Recovered/Resolved]
  - Nasopharyngitis [Recovered/Resolved]

NARRATIVE: CASE EVENT DATE: 20220101
